FAERS Safety Report 7980318-6 (Version None)
Quarter: 2011Q4

REPORT INFORMATION
  Report Type: 
  Country: None (occurrence: None)
  Receive Date: 20111214
  Receipt Date: 20111208
  Transmission Date: 20120403
  Serious: Yes (Hospitalization)
  Sender: FDA-Public Use
  Company Number: PHHY2011GB107089

PATIENT
  Age: 73 Year
  Sex: Female

DRUGS (7)
  1. QUININE SULFATE [Concomitant]
     Dosage: 300 MG, QD
  2. METFORMIN HCL [Suspect]
     Dosage: 1 G, TID
  3. RAMIPRIL [Suspect]
     Dosage: 10 MG, QD
  4. SIMVASTATIN [Concomitant]
     Dosage: 40 MG, QD
  5. ACETYLSALICYLIC ACID SRT [Suspect]
     Dosage: 75 MG, QD
     Route: 048
  6. FUROSEMIDE [Suspect]
     Dosage: 40 MG, QD
  7. MOXONIDINE [Concomitant]
     Dosage: 600 UG, UNK

REACTIONS (2)
  - HYPERKALAEMIA [None]
  - RENAL FAILURE ACUTE [None]
